FAERS Safety Report 14183858 (Version 1)
Quarter: 2017Q4

REPORT INFORMATION
  Report Type: Spontaneous
  Country: DE (occurrence: DE)
  Receive Date: 20171113
  Receipt Date: 20171113
  Transmission Date: 20180321
  Serious: Yes (Death, Life-Threatening, Hospitalization)
  Sender: FDA-Public Use
  Company Number: DE-TEVA-825003GER

PATIENT
  Age: 65 Year
  Sex: Female
  Weight: 66 kg

DRUGS (9)
  1. DEXAMETHASON [Concomitant]
     Active Substance: DEXAMETHASONE
     Dates: start: 20170328
  2. CYCLOPHOSPHAMID [Concomitant]
     Active Substance: CYCLOPHOSPHAMIDE
     Dates: start: 20170324, end: 20170326
  3. METHOTREXATE (METHOTREXATE SODIUM) [Concomitant]
     Active Substance: METHOTREXATE SODIUM
  4. G-CSF 30 MIO. IE [Concomitant]
     Dosage: 1 DOSAGE FORMS DAILY;
     Route: 058
  5. VINCRISTIN [Suspect]
     Active Substance: VINCRISTINE
     Indication: LEUKAEMIA
     Route: 037
     Dates: start: 20170405, end: 20170406
  6. DEXAMETHASON [Concomitant]
     Active Substance: DEXAMETHASONE
     Dosage: 24 MILLIGRAM DAILY;
     Dates: start: 20170322, end: 20170326
  7. CYTARABIN [Concomitant]
     Active Substance: CYTARABINE
     Dates: start: 20170328
  8. METHOTREXATE (METHOTREXATE SODIUM) [Concomitant]
     Active Substance: METHOTREXATE SODIUM
     Route: 037
     Dates: start: 20170322, end: 20170322
  9. IDARUBICIN [Concomitant]
     Active Substance: IDARUBICIN
     Route: 042

REACTIONS (4)
  - Drug administration error [Fatal]
  - Spinal cord paralysis [Fatal]
  - Incorrect route of drug administration [Fatal]
  - Respiratory paralysis [Fatal]

NARRATIVE: CASE EVENT DATE: 201704
